FAERS Safety Report 6837388-8 (Version None)
Quarter: 2010Q3

REPORT INFORMATION
  Report Type: 
  Country: None (occurrence: None)
  Receive Date: 20100713
  Receipt Date: 20070511
  Transmission Date: 20110219
  Serious: No
  Sender: FDA-Public Use
  Company Number: US-PFIZER INC-2007039329

PATIENT
  Sex: Female

DRUGS (3)
  1. CHANTIX [Suspect]
     Indication: SMOKING CESSATION THERAPY
     Dates: start: 20060101
  2. LIPITOR [Concomitant]
  3. CITALOPRAM HYDROBROMIDE [Concomitant]

REACTIONS (3)
  - ABNORMAL DREAMS [None]
  - MALAISE [None]
  - WEIGHT INCREASED [None]
